FAERS Safety Report 6553974-7 (Version None)
Quarter: 2010Q1

REPORT INFORMATION
  Report Type: 
  Country: None (occurrence: None)
  Receive Date: 20100125
  Receipt Date: 20100111
  Transmission Date: 20100710
  Serious: Yes (Death, Hospitalization)
  Sender: FDA-Public Use
  Company Number: A-NJ2009-32729

PATIENT
  Age: 71 Year
  Sex: Female

DRUGS (2)
  1. TRACLEER [Suspect]
     Indication: PULMONARY ARTERIAL HYPERTENSION
     Dosage: ORAL
     Route: 048
     Dates: start: 20091207, end: 20091212
  2. COUMADIN [Concomitant]

REACTIONS (3)
  - ESCHERICHIA URINARY TRACT INFECTION [None]
  - RENAL FAILURE ACUTE [None]
  - SEPSIS [None]
